FAERS Safety Report 9352351 (Version 1)
Quarter: 2013Q2

REPORT INFORMATION
  Report Type: Spontaneous
  Country: US (occurrence: US)
  Receive Date: 20130617
  Receipt Date: 20130617
  Transmission Date: 20140414
  Serious: No
  Sender: FDA-Public Use
  Company Number: US-009507513-1306USA003429

PATIENT
  Sex: Female

DRUGS (7)
  1. VICTRELIS [Suspect]
     Dosage: 4 CAPSULES THREE TIMES A DAY WITH MEALS
     Route: 048
  2. REBETOL [Suspect]
     Dosage: UNK
     Route: 048
  3. PEGASYS [Suspect]
     Dosage: 180 MCG/0.5 ML
  4. CYANOCOBALAMIN [Concomitant]
  5. FERROTABS (FERROUS SULFATE) [Concomitant]
  6. LAMICTAL [Concomitant]
  7. ZINC (UNSPECIFIED) [Concomitant]

REACTIONS (1)
  - Red blood cell count decreased [Unknown]
